FAERS Safety Report 22050007 (Version 1)
Quarter: 2023Q1

REPORT INFORMATION
  Report Type: Spontaneous
  Country: US (occurrence: US)
  Receive Date: 20230301
  Receipt Date: 20230301
  Transmission Date: 20230418
  Serious: No
  Sender: FDA-Public Use
  Company Number: US-VERTEX PHARMACEUTICALS-2023-002993

PATIENT
  Age: 67 Year
  Sex: Female

DRUGS (1)
  1. KALYDECO [Suspect]
     Active Substance: IVACAFTOR
     Indication: Cystic fibrosis
     Dosage: 1/4 TH TABLET IN THE EVENING
     Route: 048

REACTIONS (3)
  - Urinary tract infection [Unknown]
  - Urinary retention [Unknown]
  - Dysuria [Unknown]
